FAERS Safety Report 9747759 (Version 1)
Quarter: 2013Q4

REPORT INFORMATION
  Report Type: Spontaneous
  Country: US (occurrence: None)
  Receive Date: 20131211
  Receipt Date: 20131211
  Transmission Date: 20140711
  Serious: Yes (Life-Threatening, Other)
  Sender: FDA-Public Use
  Company Number: None

PATIENT
  Age: 33 Year
  Sex: Female
  Weight: 50.35 kg

DRUGS (1)
  1. SULFAMETHOXAZOLE/TMP DS [Suspect]
     Indication: LOCALISED INFECTION
     Route: 048
     Dates: start: 20121103, end: 20121115

REACTIONS (11)
  - Nausea [None]
  - Dizziness [None]
  - Confusional state [None]
  - Vomiting [None]
  - Cholelithiasis [None]
  - Diarrhoea [None]
  - Lethargy [None]
  - Weight decreased [None]
  - Eye pain [None]
  - Arterial rupture [None]
  - Iatrogenic injury [None]
